FAERS Safety Report 10170812 (Version 1)
Quarter: 2014Q2

REPORT INFORMATION
  Report Type: Spontaneous
  Country: US (occurrence: US)
  Receive Date: 20140514
  Receipt Date: 20140514
  Transmission Date: 20141212
  Serious: Yes (Other)
  Sender: FDA-Public Use
  Company Number: US-BRISTOL-MYERS SQUIBB COMPANY-20716239

PATIENT
  Age: 70 Year
  Sex: Female

DRUGS (9)
  1. ABATACEPT SUBQ INJECTION 125MG/ML [Suspect]
     Indication: PSORIATIC ARTHROPATHY
     Route: 058
     Dates: start: 201303, end: 201405
  2. BONIVA [Concomitant]
  3. LIPITOR [Concomitant]
  4. CLARINEX [Concomitant]
  5. ALLEGRA [Concomitant]
  6. HYDROCHLOROTHIAZIDE [Concomitant]
  7. MELOXICAM [Concomitant]
  8. OMEPRAZOLE [Concomitant]
  9. FISH OIL [Concomitant]

REACTIONS (2)
  - Myocardial infarction [Unknown]
  - Drug ineffective [Unknown]
